FAERS Safety Report 11285192 (Version 2)
Quarter: 2015Q3

REPORT INFORMATION
  Report Type: Report from Study
  Country: IT (occurrence: IT)
  Receive Date: 20150720
  Receipt Date: 20150727
  Transmission Date: 20151125
  Serious: Yes (Life-Threatening, Hospitalization, Other)
  Sender: FDA-Public Use
  Company Number: IT-GILEAD-2015-0160685

PATIENT
  Age: 66 Year
  Sex: Male
  Weight: 55 kg

DRUGS (22)
  1. PARACETAMOLO [Concomitant]
     Active Substance: ACETAMINOPHEN
     Route: 048
     Dates: start: 20150219
  2. MYCOSTATIN [Concomitant]
     Active Substance: NYSTATIN
     Route: 048
     Dates: start: 20150206
  3. STILNOX [Concomitant]
     Active Substance: ZOLPIDEM TARTRATE
     Route: 048
     Dates: start: 20150208
  4. IDELALISIB [Suspect]
     Active Substance: IDELALISIB
     Dosage: 150 MG, BID
     Route: 048
     Dates: start: 20150219, end: 20150417
  5. ENAPREN [Concomitant]
     Active Substance: ENALAPRIL MALEATE
     Indication: MITRAL VALVE INCOMPETENCE
     Route: 048
     Dates: start: 20150130
  6. TAZOBACTAM [Concomitant]
     Active Substance: TAZOBACTAM
     Indication: PYREXIA
     Route: 048
     Dates: start: 20150415
  7. RITUXIMAB [Suspect]
     Active Substance: RITUXIMAB
     Dosage: 630 MG, Q1WK
     Route: 042
     Dates: start: 20150225, end: 20150225
  8. RITUXIMAB [Suspect]
     Active Substance: RITUXIMAB
     Dosage: 630 MG, Q1WK
     Route: 042
     Dates: start: 20150401, end: 20150401
  9. LEVOXACIN [Concomitant]
     Active Substance: LEVOFLOXACIN
     Indication: PYREXIA
     Route: 048
     Dates: start: 20150603, end: 20150609
  10. LEVOXACIN [Concomitant]
     Active Substance: LEVOFLOXACIN
     Dosage: UNK
     Route: 048
     Dates: start: 20150614, end: 20150623
  11. BACTRIM [Concomitant]
     Active Substance: SULFAMETHOXAZOLE\TRIMETHOPRIM
     Route: 048
     Dates: start: 20150223
  12. RITUXIMAB [Suspect]
     Active Substance: RITUXIMAB
     Dosage: 630 MG, Q1WK
     Route: 042
     Dates: start: 20150311, end: 20150311
  13. ACICLOVIR [Concomitant]
     Active Substance: ACYCLOVIR
     Indication: HERPES ZOSTER
     Route: 048
     Dates: start: 20150209
  14. OMEPRAZOLE. [Concomitant]
     Active Substance: OMEPRAZOLE
     Route: 048
     Dates: start: 201501
  15. IDELALISIB [Suspect]
     Active Substance: IDELALISIB
     Indication: CHRONIC LYMPHOCYTIC LEUKAEMIA
     Dosage: 150 MG, BID
     Route: 048
     Dates: start: 20150420, end: 20150626
  16. RITUXIMAB [Suspect]
     Active Substance: RITUXIMAB
     Dosage: 630 MG, Q1WK
     Route: 042
     Dates: start: 20150219, end: 20150219
  17. RITUXIMAB [Suspect]
     Active Substance: RITUXIMAB
     Dosage: 630 MG, Q1WK
     Route: 042
     Dates: start: 20150325, end: 20150325
  18. RITUXIMAB [Suspect]
     Active Substance: RITUXIMAB
     Dosage: 630 MG, Q1WK
     Route: 042
     Dates: start: 20150304, end: 20150304
  19. CHLORPHENIRAMINE. [Concomitant]
     Active Substance: CHLORPHENIRAMINE
     Route: 042
     Dates: start: 20150219
  20. ALLOPURINOL. [Concomitant]
     Active Substance: ALLOPURINOL
     Route: 048
     Dates: start: 20150121
  21. RITUXIMAB [Suspect]
     Active Substance: RITUXIMAB
     Indication: CHRONIC LYMPHOCYTIC LEUKAEMIA
     Dosage: 630 MG, Q1WK
     Route: 042
     Dates: start: 20150408, end: 20150408
  22. RITUXIMAB [Suspect]
     Active Substance: RITUXIMAB
     Dosage: 630 MG, Q1WK
     Route: 042
     Dates: start: 20150318, end: 20150318

REACTIONS (5)
  - Acute respiratory failure [Recovered/Resolved]
  - Pneumonia pneumococcal [Unknown]
  - Pneumonia pseudomonal [Recovered/Resolved]
  - Cardiovascular disorder [Recovered/Resolved]
  - Febrile neutropenia [Not Recovered/Not Resolved]

NARRATIVE: CASE EVENT DATE: 20150626
